FAERS Safety Report 24900911 (Version 1)
Quarter: 2025Q1

REPORT INFORMATION
  Report Type: Spontaneous
  Country: GB (occurrence: GB)
  Receive Date: 20250129
  Receipt Date: 20250129
  Transmission Date: 20250409
  Serious: No
  Sender: ROCHE
  Company Number: GB-ROCHE-10000193235

PATIENT
  Sex: Male

DRUGS (1)
  1. OCREVUS [Suspect]
     Active Substance: OCRELIZUMAB
     Indication: Multiple sclerosis
     Route: 040

REACTIONS (5)
  - Polycythaemia [Unknown]
  - Haematocrit increased [Unknown]
  - Oral herpes [Unknown]
  - Fatigue [Unknown]
  - Chest discomfort [Unknown]
